FAERS Safety Report 7590232-6 (Version None)
Quarter: 2011Q3

REPORT INFORMATION
  Report Type: 
  Country: None (occurrence: None)
  Receive Date: 20110705
  Receipt Date: 20110624
  Transmission Date: 20111222
  Serious: Yes (Hospitalization)
  Sender: FDA-Public Use
  Company Number: US-ACTELION-A-US2011-48660

PATIENT

DRUGS (5)
  1. CALCIUM CHANNEL BLOCKERS [Concomitant]
  2. TRACLEER [Suspect]
     Indication: PULMONARY ARTERIAL HYPERTENSION
     Dosage: UNK MG, UNK
     Route: 048
     Dates: start: 20090311
  3. COUMADIN [Concomitant]
  4. ADCIRCA [Concomitant]
  5. OXYGEN [Concomitant]

REACTIONS (9)
  - RENAL FAILURE [None]
  - PULMONARY OEDEMA [None]
  - WEIGHT DECREASED [None]
  - PYREXIA [None]
  - URINARY TRACT INFECTION [None]
  - PNEUMONIA [None]
  - CARDIAC FIBRILLATION [None]
  - DYSPNOEA [None]
  - ANAEMIA [None]
